FAERS Safety Report 13967437 (Version 4)
Quarter: 2020Q3

REPORT INFORMATION
  Report Type: Spontaneous
  Country: US (occurrence: US)
  Receive Date: 20170914
  Receipt Date: 20200908
  Transmission Date: 20201102
  Serious: No
  Sender: FDA-Public Use
  Company Number: US-PFIZER INC-2017394958

PATIENT
  Sex: Female

DRUGS (1)
  1. METHOTREXATE SODIUM. [Suspect]
     Active Substance: METHOTREXATE SODIUM
     Indication: RHEUMATOID ARTHRITIS
     Dosage: 25 MG, UNK
     Dates: start: 201507, end: 201604

REACTIONS (5)
  - Vomiting [Unknown]
  - Drug intolerance [Unknown]
  - Illness [Unknown]
  - Abdominal discomfort [Unknown]
  - Drug hypersensitivity [Unknown]
